FAERS Safety Report 14398668 (Version 3)
Quarter: 2018Q1

REPORT INFORMATION
  Report Type: Spontaneous
  Country: JP (occurrence: JP)
  Receive Date: 20180117
  Receipt Date: 20180319
  Transmission Date: 20180509
  Serious: Yes (Life-Threatening)
  Sender: FDA-Public Use
  Company Number: JP-ROCHE-2056653

PATIENT
  Age: 45 Year
  Sex: Female
  Weight: 81 kg

DRUGS (1)
  1. TAMIFLU [Suspect]
     Active Substance: OSELTAMIVIR PHOSPHATE
     Indication: INFLUENZA
     Route: 048
     Dates: start: 20171229, end: 20180102

REACTIONS (4)
  - Altered state of consciousness [Recovered/Resolved]
  - Blood urea increased [Recovered/Resolved with Sequelae]
  - Blood creatinine increased [Recovered/Resolved with Sequelae]
  - Overdose [Unknown]

NARRATIVE: CASE EVENT DATE: 20180104
